FAERS Safety Report 4761896-7 (Version None)
Quarter: 2005Q3

REPORT INFORMATION
  Report Type: 
  Country: None (occurrence: None)
  Receive Date: 20050831
  Receipt Date: 20040810
  Transmission Date: 20060218
  Serious: Yes (Other)
  Sender: FDA-Public Use
  Company Number: 2004226241US

PATIENT
  Age: 67 Year
  Sex: Female
  Weight: 57.1 kg

DRUGS (5)
  1. DETROL LA [Suspect]
     Indication: HYPERTONIC BLADDER
     Dosage: 4 MG, QD, ORAL
     Route: 048
     Dates: start: 20030911
  2. CAPOTEN [Concomitant]
  3. PROCARDIA XL [Concomitant]
  4. LIPITOR [Concomitant]
  5. ASPIRIN ENTERIC COATED K.P. [Concomitant]

REACTIONS (3)
  - DRUG INEFFECTIVE [None]
  - DYSURIA [None]
  - HEART RATE INCREASED [None]
